FAERS Safety Report 9840972 (Version 2)
Quarter: 2014Q1

REPORT INFORMATION
  Report Type: Report from Study
  Country: US (occurrence: US)
  Receive Date: 20140124
  Receipt Date: 20140313
  Transmission Date: 20141002
  Serious: Yes (Hospitalization)
  Sender: FDA-Public Use
  Company Number: US-PURDUE-USA-2014-0110477

PATIENT
  Sex: Female

DRUGS (2)
  1. OXY CR TAB [Suspect]
     Indication: FIBROMYALGIA
     Dosage: 80 MG, UNK
     Route: 048
     Dates: start: 20090701
  2. OXY CR TAB [Suspect]
     Dosage: 80 MG 1 TABLET TWICE DAILY AND 2 TABS AT BEDTIME
     Dates: start: 20131011

REACTIONS (2)
  - Myocardial infarction [Recovered/Resolved]
  - Respiratory failure [Recovered/Resolved]
